FAERS Safety Report 7336066-9 (Version None)
Quarter: 2011Q1

REPORT INFORMATION
  Report Type: 
  Country: None (occurrence: None)
  Receive Date: 20110301
  Receipt Date: 20110301
  Transmission Date: 20110831
  Serious: No
  Sender: FDA-Public Use
  Company Number: None

PATIENT
  Age: 63 Year
  Sex: Male
  Weight: 125 kg

DRUGS (1)
  1. CHLORHEXIDINE GLUCONATE [Suspect]
     Dosage: ML ONCE TOP
     Route: 061
     Dates: start: 20101213, end: 20101214

REACTIONS (4)
  - PAIN [None]
  - SKIN HAEMORRHAGE [None]
  - RASH [None]
  - ERYTHEMA [None]
